FAERS Safety Report 4443315-3 (Version None)
Quarter: 2004Q3

REPORT INFORMATION
  Report Type: 
  Country: None (occurrence: None)
  Receive Date: 20040907
  Receipt Date: 20040907
  Transmission Date: 20050211
  Serious: Yes (Hospitalization)
  Sender: FDA-Public Use
  Company Number: None

PATIENT
  Age: 47 Year
  Sex: Male
  Weight: 77.1115 kg

DRUGS (1)
  1. CORDIS CYPHER DRUG ELUTING STENT [Suspect]
     Dates: start: 20040709

REACTIONS (2)
  - POST PROCEDURAL COMPLICATION [None]
  - THROMBOSIS [None]
